FAERS Safety Report 18441308 (Version 2)
Quarter: 2022Q2

REPORT INFORMATION
  Report Type: Spontaneous
  Country: US (occurrence: US)
  Receive Date: 20201029
  Receipt Date: 20220406
  Transmission Date: 20220721
  Serious: No
  Sender: FDA-Public Use
  Company Number: US-PFIZER INC-2020419805

PATIENT
  Age: 71 Year
  Sex: Female
  Weight: 60.27 kg

DRUGS (3)
  1. IBRANCE [Suspect]
     Active Substance: PALBOCICLIB
     Indication: Breast cancer female
     Dosage: 100 MG
  2. IBRANCE [Suspect]
     Active Substance: PALBOCICLIB
     Indication: Breast cancer
     Dosage: 125 MG
  3. IBRANCE [Suspect]
     Active Substance: PALBOCICLIB
     Dosage: 75 MG, CYCLIC (DAILY 7 DAYS ON 7 DAYS OFF)
     Route: 048
     Dates: start: 20190129

REACTIONS (4)
  - Fatigue [Unknown]
  - Aphthous ulcer [Unknown]
  - White blood cell count decreased [Unknown]
  - Hair growth abnormal [Unknown]
